FAERS Safety Report 7025523-0 (Version None)
Quarter: 2010Q4

REPORT INFORMATION
  Report Type: 
  Country: None (occurrence: None)
  Receive Date: 20101003
  Receipt Date: 20100921
  Transmission Date: 20110411
  Serious: Yes (Hospitalization)
  Sender: FDA-Public Use
  Company Number: PHHY2010DE62613

PATIENT
  Age: 65 Year
  Sex: Male

DRUGS (7)
  1. CYCLOSPORINE [Suspect]
     Indication: STEM CELL TRANSPLANT
     Dosage: UNK
  2. CYCLOSPORINE [Suspect]
     Indication: PROPHYLAXIS AGAINST GRAFT VERSUS HOST DISEASE
  3. MYCOPHENOLATE MOFETIL [Suspect]
     Indication: PROPHYLAXIS AGAINST GRAFT VERSUS HOST DISEASE
     Dosage: UNK
  4. FLUDARABINE [Concomitant]
     Dosage: UNK
  5. AMSACRINE [Concomitant]
     Dosage: UNK
  6. ARA-C [Concomitant]
     Dosage: UNK
  7. CYCLOPHOSPHAMIDE [Concomitant]
     Dosage: UNK

REACTIONS (6)
  - ASTHENIA [None]
  - CSF PROTEIN INCREASED [None]
  - DYSURIA [None]
  - HYPOAESTHESIA [None]
  - MYELITIS [None]
  - PARAPARESIS [None]
